FAERS Safety Report 8014300-X (Version None)
Quarter: 2011Q4

REPORT INFORMATION
  Report Type: 
  Country: None (occurrence: None)
  Receive Date: 20111229
  Receipt Date: 20111219
  Transmission Date: 20120403
  Serious: Yes (Life-Threatening)
  Sender: FDA-Public Use
  Company Number: RO-GLAXOSMITHKLINE-B0772157A

PATIENT
  Sex: Female

DRUGS (3)
  1. ACETYLCYSTEINE [Concomitant]
     Indication: NASOPHARYNGITIS
     Dosage: 1SAC PER DAY
     Route: 048
     Dates: start: 20111129
  2. CEFUROXIME [Suspect]
     Indication: NASOPHARYNGITIS
     Dosage: 125MG PER DAY
     Route: 048
     Dates: start: 20111129, end: 20111129
  3. ACETAMINOPHEN [Concomitant]
     Indication: NASOPHARYNGITIS
     Dosage: 2TSP PER DAY
     Route: 048
     Dates: start: 20111129

REACTIONS (5)
  - PYREXIA [None]
  - NAUSEA [None]
  - SOMNOLENCE [None]
  - ASTHENIA [None]
  - HEADACHE [None]
